FAERS Safety Report 8152709-4 (Version None)
Quarter: 2012Q1

REPORT INFORMATION
  Report Type: 
  Country: None (occurrence: None)
  Receive Date: 20120221
  Receipt Date: 20120213
  Transmission Date: 20120608
  Serious: Yes (Hospitalization, Other)
  Sender: FDA-Public Use
  Company Number: JP-GENZYME-THYM-1001417

PATIENT
  Sex: Female
  Weight: 43 kg

DRUGS (15)
  1. THYMOGLOBULIN [Suspect]
     Dosage: 147.5 MG, QD
     Route: 042
     Dates: start: 20100310, end: 20100310
  2. THYMOGLOBULIN [Suspect]
     Dosage: 50 MG, QD
     Route: 042
     Dates: start: 20100320, end: 20100321
  3. METHYLPREDNISOLONE SODIUM SUCCINATE [Concomitant]
     Dosage: UNK
     Dates: start: 20100320, end: 20100325
  4. THYMOGLOBULIN [Suspect]
     Dosage: 100 MG, QD
     Route: 042
     Dates: start: 20100322, end: 20100325
  5. LOXOPROFEN SODIUM [Concomitant]
     Dosage: UNK
     Dates: start: 20100320, end: 20100325
  6. THYMOGLOBULIN [Suspect]
     Indication: APLASTIC ANAEMIA
     Dosage: 2.5 MG, QD
     Route: 042
     Dates: start: 20100310, end: 20100310
  7. DIPHENHYDRAMINE HCL [Concomitant]
     Indication: PREMEDICATION
     Dosage: UNK
     Dates: start: 20100310, end: 20100310
  8. DIPHENHYDRAMINE HCL [Concomitant]
     Dosage: UNK
     Dates: start: 20100320, end: 20100325
  9. THYMOGLOBULIN [Suspect]
     Dosage: 25 MG, QD
     Route: 042
     Dates: start: 20100317, end: 20100317
  10. CYCLOSPORINE [Concomitant]
     Indication: APLASTIC ANAEMIA
  11. THYMOGLOBULIN [Suspect]
     Dosage: 50 MG, QD
     Route: 042
     Dates: start: 20100318, end: 20100318
  12. THYMOGLOBULIN [Suspect]
     Dosage: 3.5 MG, Q12HR
     Route: 042
  13. LOXOPROFEN SODIUM [Concomitant]
     Indication: PREMEDICATION
     Dosage: UNK
     Dates: start: 20100310, end: 20100310
  14. METHYLPREDNISOLONE SODIUM SUCCINATE [Concomitant]
     Indication: PROPHYLAXIS
     Dosage: UNK
     Dates: start: 20100310, end: 20100310
  15. VALACYCLOVIR HYDROCHLORIDE [Concomitant]
     Indication: PROPHYLAXIS
     Dosage: UNK
     Dates: start: 20100310, end: 20100316

REACTIONS (6)
  - PAIN [None]
  - WHITE BLOOD CELL COUNT DECREASED [None]
  - BRADYCARDIA [None]
  - ELECTROCARDIOGRAM QT PROLONGED [None]
  - LIVER DISORDER [None]
  - PYREXIA [None]
